FAERS Safety Report 7207281-X (Version None)
Quarter: 2010Q4

REPORT INFORMATION
  Report Type: 
  Country: None (occurrence: None)
  Receive Date: 20101230
  Receipt Date: 20101230
  Transmission Date: 20110411
  Serious: Yes (Hospitalization)
  Sender: FDA-Public Use
  Company Number: None

PATIENT
  Age: 14 Month
  Sex: Female
  Weight: 9.9791 kg

DRUGS (2)
  1. ROCEPHIN [Suspect]
     Indication: PNEUMONIA
     Dosage: 250MG ONCE IM OUTPATIENTLY
     Route: 030
     Dates: start: 20101216, end: 20101216
  2. ROCEPHIN [Suspect]
     Indication: ATELECTASIS
     Dosage: 750MG EVERY 24 HOURS IV
     Route: 042
     Dates: start: 20101216, end: 20101218

REACTIONS (10)
  - CHILLS [None]
  - CYANOSIS [None]
  - FEBRILE CONVULSION [None]
  - GRAND MAL CONVULSION [None]
  - INFLUENZA [None]
  - PERIPHERAL COLDNESS [None]
  - PNEUMONIA [None]
  - PYREXIA [None]
  - RASH MACULAR [None]
  - TREMOR [None]
